FAERS Safety Report 8328501-4 (Version None)
Quarter: 2012Q2

REPORT INFORMATION
  Report Type: 
  Country: None (occurrence: None)
  Receive Date: 20120502
  Receipt Date: 20100721
  Transmission Date: 20120825
  Serious: No
  Sender: FDA-Public Use
  Company Number: US-TEVA-2010003874

PATIENT
  Sex: Female

DRUGS (3)
  1. CYMBALTA [Concomitant]
  2. WELLBUTRIN [Concomitant]
  3. NUVIGIL [Suspect]
     Route: 048
     Dates: end: 20100701

REACTIONS (1)
  - CYST [None]
